FAERS Safety Report 8638754 (Version 2)
Quarter: 2014Q1

REPORT INFORMATION
  Report Type: Spontaneous
  Country: US (occurrence: None)
  Receive Date: 20120323
  Receipt Date: 20130305
  Transmission Date: 20141002
  Serious: Yes (Hospitalization)
  Sender: FDA-Public Use
  Company Number: 163-21880-11091417

PATIENT
  Age: 44 Year
  Sex: Male

DRUGS (6)
  1. REVLIMID [Suspect]
     Indication: AMYLOIDOSIS
     Dosage: 5 MG, 28 CAPS, PO
     Route: 048
     Dates: start: 201101
  2. OMEPRAZOLE [Concomitant]
  3. ZOFRAN [Concomitant]
  4. ENAL MULTIVITAMIN FORMULA (MULTIVITAMINS) [Concomitant]
  5. RENAGEL [Concomitant]
  6. COUMADIN [Concomitant]

REACTIONS (3)
  - Body temperature increased [None]
  - Rash generalised [None]
  - White blood cell count decreased [None]
